FAERS Safety Report 7247001-6 (Version None)
Quarter: 2011Q1

REPORT INFORMATION
  Report Type: 
  Country: None (occurrence: None)
  Receive Date: 20110127
  Receipt Date: 20101215
  Transmission Date: 20110831
  Serious: Yes (Other)
  Sender: FDA-Public Use
  Company Number: US-BAXTER-2010BH001595

PATIENT
  Age: 27 Year
  Sex: Female
  Weight: 53 kg

DRUGS (35)
  1. HEPARIN SODIUM INJECTION [Suspect]
     Route: 042
     Dates: start: 20080402, end: 20080901
  2. HEPARIN SODIUM INJECTION [Suspect]
     Route: 042
     Dates: start: 20080402, end: 20080901
  3. HEPARIN SODIUM INJECTION [Suspect]
     Indication: CENTRAL VENOUS CATHETERISATION
     Route: 065
     Dates: start: 20070830
  4. HEPARIN SODIUM INJECTION [Suspect]
     Indication: HAEMODIALYSIS
     Route: 065
     Dates: start: 20070830
  5. HEPARIN SODIUM INJECTION [Suspect]
     Route: 042
     Dates: start: 20070901
  6. HEPARIN SODIUM INJECTION [Suspect]
     Route: 050
     Dates: start: 20070928
  7. HEPARIN SODIUM INJECTION [Suspect]
     Route: 040
     Dates: start: 20091005, end: 20091005
  8. LANTUS [Concomitant]
     Indication: PRODUCT USED FOR UNKNOWN INDICATION
     Route: 065
  9. HEPARIN SODIUM INJECTION [Suspect]
     Route: 010
     Dates: start: 20090812, end: 20090812
  10. HEPARIN SODIUM INJECTION [Suspect]
     Route: 040
     Dates: start: 20091005, end: 20091005
  11. SERTRALINE HYDROCHLORIDE [Concomitant]
     Indication: PRODUCT USED FOR UNKNOWN INDICATION
     Route: 048
  12. KENALOG [Concomitant]
     Indication: PRODUCT USED FOR UNKNOWN INDICATION
     Route: 031
     Dates: start: 20050819
  13. HEPARIN SODIUM INJECTION [Suspect]
     Route: 042
     Dates: start: 20070904, end: 20080326
  14. MINOXIDIL [Suspect]
     Indication: PRODUCT USED FOR UNKNOWN INDICATION
     Route: 065
  15. LIPITOR [Concomitant]
     Indication: PRODUCT USED FOR UNKNOWN INDICATION
     Route: 048
  16. LISINOPRIL [Concomitant]
     Indication: PRODUCT USED FOR UNKNOWN INDICATION
     Route: 048
  17. INSULIN LISPRO [Concomitant]
     Indication: PRODUCT USED FOR UNKNOWN INDICATION
     Route: 065
  18. HEPARIN SODIUM INJECTION [Suspect]
     Route: 042
     Dates: start: 20070901
  19. HEPARIN SODIUM INJECTION [Suspect]
     Route: 042
     Dates: start: 20070904, end: 20080326
  20. HEPARIN SODIUM INJECTION [Suspect]
     Route: 042
     Dates: start: 20080331
  21. METOPROLOL [Concomitant]
     Indication: PRODUCT USED FOR UNKNOWN INDICATION
     Route: 048
  22. HEPARIN SODIUM INJECTION [Suspect]
     Route: 010
     Dates: start: 20090812, end: 20090812
  23. HEPARIN SODIUM INJECTION [Suspect]
     Route: 042
     Dates: start: 20080331
  24. CLONIDINE [Suspect]
     Indication: PRODUCT USED FOR UNKNOWN INDICATION
     Route: 065
  25. PROMETHAZINE [Concomitant]
     Indication: PRODUCT USED FOR UNKNOWN INDICATION
     Route: 048
  26. HEPARIN SODIUM INJECTION [Suspect]
     Route: 042
     Dates: start: 20070904, end: 20071107
  27. HEPARIN SODIUM INJECTION [Suspect]
     Route: 042
     Dates: start: 20070904, end: 20071107
  28. HEPARIN SODIUM INJECTION [Suspect]
     Route: 042
     Dates: start: 20091007, end: 20091007
  29. HEPARIN SODIUM INJECTION [Suspect]
     Route: 042
     Dates: start: 20091007, end: 20091007
  30. NIFEDIPINE [Concomitant]
     Indication: PRODUCT USED FOR UNKNOWN INDICATION
     Route: 048
  31. FOSRENOL [Concomitant]
     Indication: PRODUCT USED FOR UNKNOWN INDICATION
     Route: 065
  32. HEPARIN SODIUM INJECTION [Suspect]
     Route: 042
     Dates: start: 20071102, end: 20100630
  33. HEPARIN SODIUM INJECTION [Suspect]
     Route: 042
     Dates: start: 20071102, end: 20100630
  34. HEPARIN SODIUM INJECTION [Suspect]
     Route: 050
     Dates: start: 20070928
  35. PHENERGAN [Concomitant]
     Indication: PRODUCT USED FOR UNKNOWN INDICATION
     Route: 061

REACTIONS (28)
  - RENAL FAILURE ACUTE [None]
  - HYPERTENSIVE EMERGENCY [None]
  - CHEST PAIN [None]
  - VASCULAR GRAFT THROMBOSIS [None]
  - DIZZINESS [None]
  - MUSCULAR WEAKNESS [None]
  - BLOOD PRESSURE FLUCTUATION [None]
  - RESPIRATORY FAILURE [None]
  - DYSURIA [None]
  - HEADACHE [None]
  - ANXIETY [None]
  - SPLENIC RUPTURE [None]
  - PLATELET COUNT DECREASED [None]
  - ABDOMINAL PAIN [None]
  - HYPERPARATHYROIDISM [None]
  - VOMITING [None]
  - NAUSEA [None]
  - CEREBROVASCULAR ACCIDENT [None]
  - HYPOTENSION [None]
  - HALLUCINATION, VISUAL [None]
  - MALAISE [None]
  - MYOCARDIAL INFARCTION [None]
  - CONVULSION [None]
  - COAGULOPATHY [None]
  - STRESS [None]
  - HYPERHIDROSIS [None]
  - DEPRESSION [None]
  - FEAR [None]
